FAERS Safety Report 11802737 (Version 1)
Quarter: 2015Q4

REPORT INFORMATION
  Report Type: Spontaneous
  Country: US (occurrence: US)
  Receive Date: 20151204
  Receipt Date: 20151204
  Transmission Date: 20160305
  Serious: No
  Sender: FDA-Public Use
  Company Number: US-BEH-2014044729

PATIENT
  Age: 75 Year
  Sex: Male
  Weight: 117 kg

DRUGS (13)
  1. ALL OTHER THERAPEUTIC PRODUCTS [Concomitant]
     Active Substance: UNSPECIFIED INGREDIENT
  2. FLOMAX [Concomitant]
     Active Substance: TAMSULOSIN HYDROCHLORIDE
  3. ZOCOR [Concomitant]
     Active Substance: SIMVASTATIN
  4. NITROSTAT [Concomitant]
     Active Substance: NITROGLYCERIN
  5. FINASTERIDE. [Concomitant]
     Active Substance: FINASTERIDE
  6. PLAVIX [Concomitant]
     Active Substance: CLOPIDOGREL BISULFATE
  7. NORVASC [Concomitant]
     Active Substance: AMLODIPINE BESYLATE
  8. NORCO [Concomitant]
     Active Substance: ACETAMINOPHEN\HYDROCODONE BITARTRATE
  9. BERINERT [Suspect]
     Active Substance: HUMAN C1-ESTERASE INHIBITOR
     Indication: HEREDITARY ANGIOEDEMA
     Route: 042
     Dates: start: 20140327
  10. METOPROLOL [Concomitant]
     Active Substance: METOPROLOL
  11. AZELASTINE [Concomitant]
     Active Substance: AZELASTINE
  12. SPIRIVA [Concomitant]
     Active Substance: TIOTROPIUM BROMIDE MONOHYDRATE
  13. ASPIRIN. [Concomitant]
     Active Substance: ASPIRIN

REACTIONS (1)
  - Dental care [Unknown]

NARRATIVE: CASE EVENT DATE: 20140820
